FAERS Safety Report 21362757 (Version 1)
Quarter: 2022Q3

REPORT INFORMATION
  Report Type: Spontaneous
  Country: US (occurrence: US)
  Receive Date: 20220922
  Receipt Date: 20220922
  Transmission Date: 20221027
  Serious: Yes (Other)
  Sender: FDA-Public Use
  Company Number: US-STRIDES ARCOLAB LIMITED-2022SP010841

PATIENT
  Age: 66 Year
  Sex: Male

DRUGS (13)
  1. PREDNISOLONE [Suspect]
     Active Substance: PREDNISOLONE
     Indication: High-grade B-cell lymphoma
     Dosage: UNK; (ADMINISTERED UNDER THE R-CHOP CHEMOTHERAPY REGIMEN)
     Route: 065
  2. DEXAMETHASONE [Suspect]
     Active Substance: DEXAMETHASONE
     Indication: High-grade B-cell lymphoma
     Dosage: UNK; (ADMINISTERED AS A PART OF THE R-DHAP CHEMOTHERAPY REGIMEN)
     Route: 065
  3. DEXAMETHASONE [Suspect]
     Active Substance: DEXAMETHASONE
     Dosage: UNK; (ADMINISTERED AS A PART OF THE R-DHAOX CHEMOTHERAPY REGIMEN)
     Route: 065
  4. CISPLATIN [Suspect]
     Active Substance: CISPLATIN
     Indication: High-grade B-cell lymphoma
     Dosage: UNK; (ADMINISTERED AS A PART OF THE R-DHAP CHEMOTHERAPY REGIMEN)
     Route: 065
  5. RITUXIMAB [Suspect]
     Active Substance: RITUXIMAB
     Indication: High-grade B-cell lymphoma
     Dosage: UNK; (ADMINISTERED UNDER THE R-CHOP CHEMOTHERAPY REGIMEN)
     Route: 065
  6. RITUXIMAB [Suspect]
     Active Substance: RITUXIMAB
     Dosage: UNK; (ADMINISTERED AS A PART OF THE R-DHAP REGIMEN)
     Route: 065
  7. RITUXIMAB [Suspect]
     Active Substance: RITUXIMAB
     Dosage: UNK; (ADMINISTERED AS APART OF R-DHAOX REGIMEN)
     Route: 065
  8. CYCLOPHOSPHAMIDE [Suspect]
     Active Substance: CYCLOPHOSPHAMIDE
     Indication: High-grade B-cell lymphoma
     Dosage: UNK; (ADMINISTERED UNDER THE R-CHOP CHEMOTHERAPY REGIMEN)
     Route: 065
  9. DOXORUBICIN [Suspect]
     Active Substance: DOXORUBICIN
     Indication: High-grade B-cell lymphoma
     Dosage: UNK; (ADMINISTERED UNDER THE R-CHOP CHEMOTHERAPY REGIMEN)
     Route: 065
  10. ONCOVIN [Suspect]
     Active Substance: VINCRISTINE SULFATE
     Indication: High-grade B-cell lymphoma
     Dosage: UNK; (ADMINISTERED UNDER THE R-CHOP CHEMOTHERAPY REGIMEN)
     Route: 065
  11. CYTARABINE [Suspect]
     Active Substance: CYTARABINE
     Indication: High-grade B-cell lymphoma
     Dosage: UNK; HIGH-DOSE (ADMINISTERED AS A PART OF THE R-DHAP CHEMOTHERAPY REGIMEN)
     Route: 065
  12. CYTARABINE [Suspect]
     Active Substance: CYTARABINE
     Dosage: UNK; HIGH-DOSE (ADMINISTERED AS A PART OF THE R-DHAOX CHEMOTHERAPY REGIMEN)
     Route: 065
  13. OXALIPLATIN [Suspect]
     Active Substance: OXALIPLATIN
     Indication: High-grade B-cell lymphoma
     Dosage: UNK; (ADMINISTERED AS A PART OF THE R-DHAOX CHEMOTHERAPY REGIMEN)
     Route: 065

REACTIONS (2)
  - Drug ineffective [Unknown]
  - Off label use [Unknown]
